FAERS Safety Report 9484492 (Version 1)
Quarter: 2013Q3

REPORT INFORMATION
  Report Type: Spontaneous
  Country: US (occurrence: US)
  Receive Date: 20130828
  Receipt Date: 20130828
  Transmission Date: 20140515
  Serious: No
  Sender: FDA-Public Use
  Company Number: US-ABBOTT-13P-163-1092687-00

PATIENT
  Age: 75 Year
  Sex: Male
  Weight: 72.64 kg

DRUGS (1)
  1. ANDROGEL 1.62% [Suspect]
     Indication: BLOOD TESTOSTERONE DECREASED
     Dosage: 4 PUMPS
     Route: 061
     Dates: start: 2012, end: 201303

REACTIONS (2)
  - Testicular pain [Recovered/Resolved]
  - Haemorrhage [Recovered/Resolved]
